FAERS Safety Report 15103910 (Version 2)
Quarter: 2018Q3

REPORT INFORMATION
  Report Type: Spontaneous
  Country: US (occurrence: US)
  Receive Date: 20180703
  Receipt Date: 20180814
  Transmission Date: 20181010
  Serious: No
  Sender: FDA-Public Use
  Company Number: US-ALKERMES INC.-ALK-2018-003396

PATIENT
  Age: 69 Year
  Sex: Female

DRUGS (2)
  1. OTHER THERAPEUTIC PRODUCTS [Suspect]
     Active Substance: UNSPECIFIED INGREDIENT
     Indication: BREAST CANCER
  2. VIVITROL [Suspect]
     Active Substance: NALTREXONE
     Indication: ALCOHOLISM
     Dosage: 380 MG, QMO
     Route: 030
     Dates: start: 2016

REACTIONS (10)
  - Injection site mass [Unknown]
  - Benign neoplasm [Unknown]
  - Depression [Unknown]
  - Hepatic cirrhosis [Not Recovered/Not Resolved]
  - Product administered at inappropriate site [Unknown]
  - Injection site reaction [Unknown]
  - Alcoholism [Unknown]
  - Stress [Not Recovered/Not Resolved]
  - Road traffic accident [Unknown]
  - Drug administration error [Unknown]

NARRATIVE: CASE EVENT DATE: 2017
